FAERS Safety Report 9965505 (Version 1)
Quarter: 2014Q1

REPORT INFORMATION
  Report Type: Report from Study
  Country: US (occurrence: US)
  Receive Date: 20140305
  Receipt Date: 20140305
  Transmission Date: 20141002
  Serious: No
  Sender: FDA-Public Use
  Company Number: US-ABBVIE-13P-163-1126588-00

PATIENT
  Age: 61 Year
  Sex: Male
  Weight: 95.34 kg

DRUGS (1)
  1. HUMIRA [Suspect]
     Indication: PSORIATIC ARTHROPATHY
     Route: 058
     Dates: start: 2010

REACTIONS (6)
  - Device malfunction [Recovered/Resolved]
  - Device malfunction [Recovered/Resolved]
  - Incorrect dose administered [Recovered/Resolved]
  - Device malfunction [Recovered/Resolved]
  - Incorrect dose administered [Recovered/Resolved]
  - Injection site haemorrhage [Recovered/Resolved]
